FAERS Safety Report 7391802-0 (Version None)
Quarter: 2011Q2

REPORT INFORMATION
  Report Type: 
  Country: None (occurrence: None)
  Receive Date: 20110404
  Receipt Date: 20110324
  Transmission Date: 20111010
  Serious: Yes (Hospitalization)
  Sender: FDA-Public Use
  Company Number: NL-ROCHE-739799

PATIENT
  Age: 60 Year
  Sex: Male
  Weight: 100.6 kg

DRUGS (19)
  1. PREDNISOLONE [Suspect]
     Route: 048
     Dates: start: 20101029
  2. METOPROLOL [Concomitant]
     Dates: start: 20091013
  3. TAMSULOSIN HCL [Concomitant]
     Dates: start: 20091013
  4. MYCOPHENOLATE MOFETIL [Suspect]
     Route: 048
     Dates: start: 20100114
  5. CYCLOSPORINE [Suspect]
     Route: 048
     Dates: start: 20100114, end: 20100316
  6. PRAVASTATIN [Concomitant]
  7. INSULIN GLARGINE [Concomitant]
     Dates: start: 20090116
  8. MYCOPHENOLATE MOFETIL [Suspect]
     Route: 048
     Dates: start: 20090116
  9. PREDNISOLONE [Suspect]
     Route: 048
     Dates: start: 20101020, end: 20101028
  10. NOVORAPID [Concomitant]
     Dates: start: 20090116, end: 20101001
  11. PREDNISOLONE [Suspect]
     Route: 048
     Dates: start: 20101128
  12. NOVORAPID [Concomitant]
     Dates: start: 20101020
  13. MYCOPHENOLATE MOFETIL [Suspect]
     Route: 048
  14. CYCLOSPORINE [Suspect]
     Route: 048
     Dates: start: 20100317
  15. PREDNISOLONE [Suspect]
     Route: 048
     Dates: start: 20090114, end: 20101019
  16. CYCLOSPORINE [Suspect]
     Route: 048
     Dates: start: 20090116
  17. PANTOPRAZOLE [Concomitant]
     Dates: start: 20090115
  18. ENALAPRIL MALEATE [Concomitant]
     Dates: start: 20091013
  19. PREDNISOLONE [Suspect]
     Route: 048
     Dates: start: 20101203

REACTIONS (3)
  - CELLULITIS [None]
  - SKIN ULCER [None]
  - OSTEOMYELITIS [None]
